FAERS Safety Report 4636433-8 (Version None)
Quarter: 2005Q2

REPORT INFORMATION
  Report Type: 
  Country: None (occurrence: None)
  Receive Date: 20050413
  Receipt Date: 20050413
  Transmission Date: 20051028
  Serious: No
  Sender: FDA-Public Use
  Company Number: None

PATIENT
  Sex: Male
  Weight: 83.9154 kg

DRUGS (3)
  1. FLOMAX [Suspect]
     Indication: BENIGN PROSTATIC HYPERPLASIA
     Dosage: TWO QDAY ORAL
     Route: 048
     Dates: start: 20000101, end: 20050430
  2. ALPHAGAN [Concomitant]
  3. HYDROCHLOROTHIAZIDE [Concomitant]

REACTIONS (4)
  - CATARACT OPERATION COMPLICATION [None]
  - HYPOTONIA [None]
  - IRIDOCELE [None]
  - IRIS DISORDER [None]
